FAERS Safety Report 9601603 (Version 1)
Quarter: 2013Q4

REPORT INFORMATION
  Report Type: Report from Study
  Country: JP (occurrence: JP)
  Receive Date: 20131007
  Receipt Date: 20131007
  Transmission Date: 20140711
  Serious: Yes (Hospitalization)
  Sender: FDA-Public Use
  Company Number: JP-ACTELION-A-CH2013-89493

PATIENT
  Age: 17 Year
  Sex: Male

DRUGS (8)
  1. ZAVESCA [Suspect]
     Indication: NIEMANN-PICK DISEASE
     Dosage: 100 MG, TID
     Route: 048
     Dates: start: 20130110
  2. ZAVESCA [Suspect]
     Dosage: 100 MG, OD
     Route: 048
     Dates: start: 20120802, end: 20120803
  3. ZAVESCA [Suspect]
     Dosage: 100 MG, BID
     Route: 048
     Dates: start: 20120804, end: 20120805
  4. ZAVESCA [Suspect]
     Dosage: 100 MG, TID
     Route: 048
     Dates: start: 20120806, end: 20120905
  5. ZAVESCA [Suspect]
     Dosage: 500 MG, QD
     Route: 048
     Dates: start: 20120906, end: 20121001
  6. ZAVESCA [Suspect]
     Dosage: 200 MG, TID
     Route: 048
     Dates: start: 20121002, end: 20121004
  7. ZAVESCA [Suspect]
     Dosage: 100 MG, TID
     Route: 048
     Dates: start: 20121005, end: 20121005
  8. ZAVESCA [Suspect]
     Dosage: 200 MG, BID
     Route: 048
     Dates: start: 20121006, end: 20130109

REACTIONS (6)
  - Epilepsy [Unknown]
  - Convulsion [Unknown]
  - Loss of consciousness [Unknown]
  - Fall [Unknown]
  - Pneumonia aspiration [Unknown]
  - Vomiting [Unknown]
